FAERS Safety Report 6303234-4 (Version None)
Quarter: 2009Q3

REPORT INFORMATION
  Report Type: 
  Country: None (occurrence: None)
  Receive Date: 20090810
  Receipt Date: 20090219
  Transmission Date: 20100115
  Serious: No
  Sender: FDA-Public Use
  Company Number: A0769509A

PATIENT
  Age: 40 Year
  Sex: Female

DRUGS (4)
  1. PAXIL [Suspect]
     Indication: PANIC DISORDER
     Dosage: 12.5MG PER DAY
     Route: 048
  2. LEXAPRO [Concomitant]
  3. XANAX [Concomitant]
  4. TAMOXIFEN CITRATE [Concomitant]

REACTIONS (2)
  - PARAESTHESIA [None]
  - VISUAL IMPAIRMENT [None]
